FAERS Safety Report 7043471-7 (Version None)
Quarter: 2010Q3

REPORT INFORMATION
  Report Type: 
  Country: None (occurrence: None)
  Receive Date: 20100929
  Receipt Date: 20100628
  Transmission Date: 20110219
  Serious: No
  Sender: FDA-Public Use
  Company Number: US-WYE-H16079210

PATIENT
  Age: 66 Year
  Sex: Female
  Weight: 81.72 kg

DRUGS (2)
  1. PRISTIQ [Suspect]
     Indication: DEPRESSION
     Dosage: 50 MG 1X PER 1 DAY
     Dates: start: 20100616
  2. XANAX [Concomitant]

REACTIONS (6)
  - BIPOLAR I DISORDER [None]
  - CONDITION AGGRAVATED [None]
  - CRYING [None]
  - EXPIRED DRUG ADMINISTERED [None]
  - EYE PAIN [None]
  - RESTLESSNESS [None]
